FAERS Safety Report 5155084-2 (Version None)
Quarter: 2006Q4

REPORT INFORMATION
  Report Type: 
  Country: None (occurrence: None)
  Receive Date: 20061121
  Receipt Date: 20061106
  Transmission Date: 20070319
  Serious: Yes (Other)
  Sender: FDA-Public Use
  Company Number: JP-JPN-A200604718

PATIENT
  Sex: Male

DRUGS (1)
  1. PAXIL [Suspect]
     Indication: DEPRESSIVE SYMPTOM
     Dosage: 10MG PER DAY
     Route: 048
     Dates: start: 20061102, end: 20061105

REACTIONS (6)
  - AGITATION [None]
  - DELUSION [None]
  - INSOMNIA [None]
  - PORIOMANIA [None]
  - SEROTONIN SYNDROME [None]
  - VERBAL ABUSE [None]
